FAERS Safety Report 17709567 (Version 1)
Quarter: 2020Q2

REPORT INFORMATION
  Report Type: Spontaneous
  Country: BG (occurrence: BG)
  Receive Date: 20200427
  Receipt Date: 20200427
  Transmission Date: 20200714
  Serious: Yes (Other)
  Sender: FDA-Public Use
  Company Number: BG-BAUSCH-BL-2020-012179

PATIENT
  Age: 71 Year
  Sex: Female

DRUGS (2)
  1. BIMATOPROST. [Suspect]
     Active Substance: BIMATOPROST
     Indication: INTRAOCULAR PRESSURE DECREASED
     Dosage: BOTH EYE
     Route: 047
     Dates: start: 2015
  2. DORZOLAMIDE/TIMOLOL [Suspect]
     Active Substance: DORZOLAMIDE\TIMOLOL
     Indication: INTRAOCULAR PRESSURE DECREASED
     Dosage: FIXED COMBINATION, BOTH EYE
     Route: 047
     Dates: start: 2015

REACTIONS (1)
  - Choroidal effusion [Recovered/Resolved]
